FAERS Safety Report 4665842-6 (Version None)
Quarter: 2005Q2

REPORT INFORMATION
  Report Type: 
  Country: None (occurrence: None)
  Receive Date: 20050519
  Receipt Date: 20050405
  Transmission Date: 20051028
  Serious: No
  Sender: FDA-Public Use
  Company Number: US-GLAXOSMITHKLINE-A0552898A

PATIENT
  Age: 61 Year
  Sex: Male

DRUGS (1)
  1. AVODART [Suspect]
     Dosage: .5MG PER DAY
     Route: 048

REACTIONS (2)
  - GYNAECOMASTIA [None]
  - HOT FLUSH [None]
